FAERS Safety Report 6273427-3 (Version None)
Quarter: 2009Q3

REPORT INFORMATION
  Report Type: 
  Country: None (occurrence: None)
  Receive Date: 20090720
  Receipt Date: 20090715
  Transmission Date: 20100115
  Serious: Yes (Hospitalization)
  Sender: FDA-Public Use
  Company Number: FR-WYE-G04055309

PATIENT
  Sex: Male
  Weight: 65 kg

DRUGS (3)
  1. RHINADVIL [Suspect]
     Indication: TONSILLITIS
     Dosage: 3 TABLETS TOTAL DAILY
     Route: 048
     Dates: start: 20090622, end: 20090626
  2. RHINOFLUIMUCIL [Suspect]
     Indication: TONSILLITIS
     Dosage: 4 SPRAYS TOTAL DAILY
     Route: 045
     Dates: start: 20090622, end: 20090626
  3. AUGMENTIN [Suspect]
     Indication: TONSILLITIS
     Route: 048
     Dates: start: 20090619, end: 20090626

REACTIONS (4)
  - EYELID OEDEMA [None]
  - LIP OEDEMA [None]
  - PRURITUS [None]
  - RASH MACULO-PAPULAR [None]
